FAERS Safety Report 24178685 (Version 2)
Quarter: 2024Q3

REPORT INFORMATION
  Report Type: Report from Study
  Country: NL (occurrence: NL)
  Receive Date: 20240806
  Receipt Date: 20240816
  Transmission Date: 20241017
  Serious: Yes (Death, Other)
  Sender: VERITY PHARMACEUTICALS
  Company Number: NL-VER-202400049

PATIENT
  Sex: Male

DRUGS (1)
  1. TRIPTORELIN PAMOATE [Suspect]
     Active Substance: TRIPTORELIN PAMOATE
     Indication: Prostate cancer
     Dosage: 22.5 MILLIGRAM(S), 1 IN 6 MONTH, SUSPENSION FOR INJECTION
     Route: 030
     Dates: start: 202401

REACTIONS (1)
  - Prostate cancer [Fatal]
